FAERS Safety Report 9529556 (Version 1)
Quarter: 2013Q3

REPORT INFORMATION
  Report Type: Spontaneous
  Country: GB (occurrence: GB)
  Receive Date: 20130917
  Receipt Date: 20130917
  Transmission Date: 20140515
  Serious: Yes (Other)
  Sender: FDA-Public Use
  Company Number: GB-ASTRAZENECA-2013SE69184

PATIENT
  Age: 56 Year
  Sex: Female
  Weight: 57 kg

DRUGS (7)
  1. OMEPRAZOLE [Suspect]
     Route: 048
     Dates: start: 20130829
  2. BECLOMETASONE [Concomitant]
  3. BUPROPION [Concomitant]
  4. CETIRIZINE [Concomitant]
  5. FEMOSTON [Concomitant]
     Dates: start: 20130404, end: 20130627
  6. FEMOSTON [Concomitant]
     Dates: start: 20130716
  7. RANITIDINE [Concomitant]
     Dates: start: 20130903

REACTIONS (3)
  - Gastrointestinal sounds abnormal [Unknown]
  - Poor quality sleep [Unknown]
  - Insomnia [Unknown]
